FAERS Safety Report 4657678-7 (Version None)
Quarter: 2005Q2

REPORT INFORMATION
  Report Type: 
  Country: None (occurrence: None)
  Receive Date: 20050411
  Receipt Date: 20050111
  Transmission Date: 20051028
  Serious: Yes (Hospitalization)
  Sender: FDA-Public Use
  Company Number: GXBR2005US00443

PATIENT
  Age: 51 Year
  Sex: Male
  Weight: 102.9 kg

DRUGS (3)
  1. MEFLOQUINE HCL [Suspect]
     Dosage: 250 MG, QW, ORAL;  500 MG, QW
     Route: 048
     Dates: start: 20040601
  2. VICODIN [Concomitant]
  3. VALIUM [Concomitant]

REACTIONS (4)
  - CONVULSION [None]
  - DIZZINESS [None]
  - NAUSEA [None]
  - TINNITUS [None]
